FAERS Safety Report 23702084 (Version 2)
Quarter: 2024Q2

REPORT INFORMATION
  Report Type: Report from Study
  Country: CA (occurrence: CA)
  Receive Date: 20240403
  Receipt Date: 20240417
  Transmission Date: 20240716
  Serious: Yes (Hospitalization, Other)
  Sender: FDA-Public Use
  Company Number: CA-TAKEDA-2024TUS031337

PATIENT
  Age: 54 Year
  Sex: Female

DRUGS (3)
  1. VEDOLIZUMAB [Suspect]
     Active Substance: VEDOLIZUMAB
     Indication: Colitis ulcerative
     Dosage: 300 MILLIGRAM
     Route: 042
     Dates: start: 20220418
  2. VEDOLIZUMAB [Suspect]
     Active Substance: VEDOLIZUMAB
     Dosage: 300 MILLIGRAM
     Route: 042
  3. Betnesol [Concomitant]
     Dosage: UNK
     Dates: start: 20220327

REACTIONS (10)
  - Uveitis [Recovered/Resolved]
  - Deafness [Not Recovered/Not Resolved]
  - Neck pain [Not Recovered/Not Resolved]
  - Hemiparesis [Not Recovered/Not Resolved]
  - Progressive multifocal leukoencephalopathy [Unknown]
  - Headache [Not Recovered/Not Resolved]
  - Tinnitus [Unknown]
  - Confusional state [Recovering/Resolving]
  - Middle ear effusion [Unknown]
  - Arthralgia [Recovering/Resolving]

NARRATIVE: CASE EVENT DATE: 20240303
